FAERS Safety Report 8545911-0 (Version None)
Quarter: 2012Q3

REPORT INFORMATION
  Report Type: 
  Country: None (occurrence: None)
  Receive Date: 20120727
  Receipt Date: 20111121
  Transmission Date: 20120928
  Serious: No
  Sender: FDA-Public Use
  Company Number: US-ASTRAZENECA-2011SE70651

PATIENT
  Age: 623 Month
  Sex: Female

DRUGS (2)
  1. SEROQUEL [Suspect]
     Indication: BIPOLAR I DISORDER
     Route: 048
  2. DEPAKOTE [Suspect]
     Indication: BIPOLAR I DISORDER
     Route: 065

REACTIONS (2)
  - ALOPECIA [None]
  - CARPAL TUNNEL SYNDROME [None]
